FAERS Safety Report 9587601 (Version 2)
Quarter: 2013Q4

REPORT INFORMATION
  Report Type: Report from Study
  Country: US (occurrence: US)
  Receive Date: 20131003
  Receipt Date: 20131011
  Transmission Date: 20140711
  Serious: Yes (Hospitalization, Other)
  Sender: FDA-Public Use
  Company Number: US-ABBVIE-13P-163-1151237-00

PATIENT
  Age: 26 Year
  Sex: Female

DRUGS (4)
  1. HUMIRA [Suspect]
     Indication: CROHN^S DISEASE
     Dates: end: 2011
  2. HUMIRA [Suspect]
     Dates: start: 20130731, end: 20130731
  3. HUMIRA [Suspect]
     Dates: start: 20130814, end: 20130814
  4. HUMIRA [Suspect]
     Dates: start: 20130828, end: 20130828

REACTIONS (14)
  - Muscle oedema [Recovered/Resolved]
  - Crohn^s disease [Unknown]
  - Abscess [Unknown]
  - Pain in extremity [Unknown]
  - Abdominal pain [Unknown]
  - Abdominal infection [Unknown]
  - Abdominal infection [Unknown]
  - Cough [Recovering/Resolving]
  - Ear infection [Recovering/Resolving]
  - Lower respiratory tract infection [Recovering/Resolving]
  - Nasopharyngitis [Recovering/Resolving]
  - Spinal disorder [Recovered/Resolved]
  - Upper respiratory tract infection [Unknown]
  - Oropharyngeal pain [Unknown]
